FAERS Safety Report 14393743 (Version 1)
Quarter: 2018Q1

REPORT INFORMATION
  Report Type: Spontaneous
  Country: US (occurrence: US)
  Receive Date: 20180112
  Receipt Date: 20180112
  Transmission Date: 20180509
  Serious: No
  Sender: FDA-Public Use
  Company Number: None

PATIENT
  Age: 31 Year
  Sex: Female

DRUGS (1)
  1. LUPRON [Suspect]
     Active Substance: LEUPROLIDE ACETATE
     Indication: ENDOMETRIOSIS
     Route: 030
     Dates: start: 20170607

REACTIONS (3)
  - Menstruation irregular [None]
  - Depression [None]
  - Hot flush [None]

NARRATIVE: CASE EVENT DATE: 20180112
